FAERS Safety Report 5136895-6 (Version None)
Quarter: 2006Q4

REPORT INFORMATION
  Report Type: 
  Country: None (occurrence: None)
  Receive Date: 20061023
  Receipt Date: 20061010
  Transmission Date: 20070319
  Serious: Yes (Life-Threatening)
  Sender: FDA-Public Use
  Company Number: 2006125527

PATIENT
  Age: 32 Year
  Sex: Male

DRUGS (3)
  1. GABAPENTIN [Suspect]
     Indication: EPILEPSY
     Dosage: 200 MG (1 D), ORAL
     Route: 048
     Dates: start: 20060927, end: 20061005
  2. TEGRETOL [Concomitant]
  3. PHENOBARBITAL TAB [Concomitant]

REACTIONS (4)
  - IRRITABILITY [None]
  - OVERDOSE [None]
  - SUICIDAL IDEATION [None]
  - SUICIDE ATTEMPT [None]
